FAERS Safety Report 14959570 (Version 1)
Quarter: 2018Q2

REPORT INFORMATION
  Report Type: Spontaneous
  Country: US (occurrence: US)
  Receive Date: 20180531
  Receipt Date: 20180531
  Transmission Date: 20180711
  Serious: No
  Sender: FDA-Public Use
  Company Number: US-PERRIGO-17US025062

PATIENT
  Age: 18 Year
  Sex: Male
  Weight: 65.76 kg

DRUGS (2)
  1. MINOXIDIL. [Suspect]
     Active Substance: MINOXIDIL
     Indication: ALOPECIA
     Dosage: 1/2 CAPFUL, BID
     Route: 061
     Dates: start: 201511, end: 201601
  2. MINOXIDIL. [Suspect]
     Active Substance: MINOXIDIL
     Dosage: 1/2 CAPFUL, BID
     Route: 061
     Dates: start: 201601, end: 201603

REACTIONS (9)
  - Hyperhidrosis [Recovering/Resolving]
  - Drug ineffective [Unknown]
  - Chest pain [Recovering/Resolving]
  - Application site irritation [Recovering/Resolving]
  - Dizziness [Recovering/Resolving]
  - Palpitations [Recovering/Resolving]
  - Skin irritation [Recovering/Resolving]
  - Heart rate increased [Recovering/Resolving]
  - Hypertrichosis [Recovering/Resolving]

NARRATIVE: CASE EVENT DATE: 201511
